FAERS Safety Report 13594722 (Version 1)
Quarter: 2017Q2

REPORT INFORMATION
  Report Type: Spontaneous
  Country: US (occurrence: US)
  Receive Date: 20170530
  Receipt Date: 20170530
  Transmission Date: 20170830
  Serious: No
  Sender: FDA-Public Use
  Company Number: US-ALARA PHARMACEUTICAL CORPORATION-2021397

PATIENT
  Age: 65 Year
  Sex: Female
  Weight: 81.82 kg

DRUGS (2)
  1. LEVO-T [Suspect]
     Active Substance: LEVOTHYROXINE SODIUM
     Route: 048
  2. CLARITIN [Concomitant]
     Active Substance: LORATADINE

REACTIONS (4)
  - Abdominal discomfort [Recovered/Resolved]
  - Product taste abnormal [Recovered/Resolved]
  - Diarrhoea [Recovered/Resolved]
  - Urine odour abnormal [Recovered/Resolved]
